FAERS Safety Report 25616601 (Version 1)
Quarter: 2025Q3

REPORT INFORMATION
  Report Type: Spontaneous
  Country: US (occurrence: None)
  Receive Date: 20250728
  Receipt Date: 20250728
  Transmission Date: 20251021
  Serious: Yes (Other)
  Sender: FDA-CTU
  Company Number: None

PATIENT
  Age: 59 Year
  Sex: Female
  Weight: 57.6 kg

DRUGS (4)
  1. DEXAMETHASONE [Suspect]
     Active Substance: DEXAMETHASONE
     Indication: Nausea
  2. DIAZEPAM [Concomitant]
     Active Substance: DIAZEPAM
  3. mirtizapine [Concomitant]
  4. OXYCODONE [Concomitant]
     Active Substance: OXYCODONE

REACTIONS (4)
  - Burning sensation [None]
  - Infusion related reaction [None]
  - Urinary incontinence [None]
  - Sedation complication [None]

NARRATIVE: CASE EVENT DATE: 20250612
